FAERS Safety Report 12635257 (Version 3)
Quarter: 2016Q3

REPORT INFORMATION
  Report Type: Report from Study
  Country: MX (occurrence: MX)
  Receive Date: 20160809
  Receipt Date: 20160907
  Transmission Date: 20161109
  Serious: No
  Sender: FDA-Public Use
  Company Number: PHHY2016MX065039

PATIENT
  Sex: Female
  Weight: 75 kg

DRUGS (3)
  1. CO-DIOVAN [Suspect]
     Active Substance: HYDROCHLOROTHIAZIDE\VALSARTAN
     Indication: HYPERTENSION
     Dosage: 1 DF, QD (160 MG VALSARTAN AND 12.5 MG HYDROCHLOROTHIAZIDE), QD (AT NIGHT)
     Route: 048
     Dates: start: 201406
  2. XIFEN [Concomitant]
     Indication: PRODUCT USED FOR UNKNOWN INDICATION
     Route: 065
  3. OMEGA 3 [Concomitant]
     Active Substance: OMEGA-3 FATTY ACIDS
     Indication: MEMORY IMPAIRMENT
     Dosage: 2 DF, QD
     Route: 048
     Dates: start: 2014

REACTIONS (1)
  - No adverse event [Unknown]
